FAERS Safety Report 14571364 (Version 4)
Quarter: 2018Q3

REPORT INFORMATION
  Report Type: Report from Study
  Country: None (occurrence: BE)
  Receive Date: 20180226
  Receipt Date: 20180901
  Transmission Date: 20181010
  Serious: Yes (Death, Hospitalization)
  Sender: FDA-Public Use
  Company Number: BE-ABBVIE-18K-013-2267979-00

PATIENT
  Age: 76 Year
  Sex: Male

DRUGS (6)
  1. DUODOPA [Suspect]
     Active Substance: CARBIDOPA\LEVODOPA
     Indication: PARKINSON^S DISEASE
     Dosage: MD=4 ML?CD=2.2ML/HR DURING 16HRS ?ED=2ML?ND=1.7ML/HR DURING 8HRS
     Route: 050
     Dates: start: 20130923, end: 20130927
  2. DUODOPA [Suspect]
     Active Substance: CARBIDOPA\LEVODOPA
     Dosage: DOSES CONTINUOUSLY MONITORED AND ADAPTED
     Route: 050
     Dates: start: 201710, end: 20171027
  3. PROLOPA 250 [Concomitant]
     Dosage: FORM STRENGTH: 200MG/50MG;
  4. DUODOPA [Suspect]
     Active Substance: CARBIDOPA\LEVODOPA
     Dosage: DOSES CONTINUOUSLY MONITORED AND ADAPTED
     Route: 050
     Dates: start: 20130927, end: 201710
  5. PROLOPA 250 [Concomitant]
     Indication: PARKINSON^S DISEASE
     Dosage: FORM STRENGTH: 200MG/50MG;
     Route: 048
  6. DUODOPA [Suspect]
     Active Substance: CARBIDOPA\LEVODOPA
     Dosage: MD=3.5ML?CD=2.9ML/HR DURING 16HRS ?ED=2.5ML?ND=1.5ML/HR DURING 8HRS
     Route: 050
     Dates: start: 20171027

REACTIONS (6)
  - Death [Fatal]
  - Cognitive disorder [Unknown]
  - Epilepsy [Unknown]
  - Gait disturbance [Unknown]
  - Hallucination [Unknown]
  - Dysphagia [Not Recovered/Not Resolved]

NARRATIVE: CASE EVENT DATE: 201802
